FAERS Safety Report 11735385 (Version 2)
Quarter: 2016Q1

REPORT INFORMATION
  Report Type: Spontaneous
  Country: JP (occurrence: JP)
  Receive Date: 20151113
  Receipt Date: 20160201
  Transmission Date: 20160525
  Serious: Yes (Other)
  Sender: FDA-Public Use
  Company Number: JP-MYLANLABS-2015M1039227

PATIENT

DRUGS (8)
  1. PREDNISOLONE. [Suspect]
     Active Substance: PREDNISOLONE
     Dosage: 40 MG/DAY
     Route: 048
  2. CYCLOPHOSPHAMIDE. [Concomitant]
     Active Substance: CYCLOPHOSPHAMIDE
     Indication: PEMPHIGUS
     Route: 065
  3. CICLOSPORIN [Concomitant]
     Active Substance: CYCLOSPORINE
     Indication: PEMPHIGUS
     Route: 065
  4. PREDNISOLONE. [Suspect]
     Active Substance: PREDNISOLONE
     Indication: PEMPHIGUS
     Dosage: 60 MG, QD
     Route: 048
  5. MIZORIBINE [Concomitant]
     Active Substance: MIZORIBINE
     Indication: PEMPHIGUS
     Route: 065
  6. PREDNISOLONE. [Suspect]
     Active Substance: PREDNISOLONE
     Dosage: 24 MG/DAY
     Route: 048
  7. IMMUNE GLOBULIN [Suspect]
     Active Substance: HUMAN IMMUNOGLOBULIN G
     Indication: PEMPHIGUS
     Dosage: 300-400 MG/KG/DAY FOR 5 DAYS ALMOST MONTHLY; ON 15-18 JUN 2012 AND MOST RECENT ON 19-23 NOV 2013
     Route: 042
  8. AZATHIOPRINE. [Suspect]
     Active Substance: AZATHIOPRINE
     Indication: PEMPHIGUS
     Route: 065

REACTIONS (5)
  - Hepatitis B core antibody positive [Recovering/Resolving]
  - Hepatic function abnormal [Unknown]
  - Hepatitis B surface antibody positive [Recovering/Resolving]
  - False positive investigation result [Recovering/Resolving]
  - Diabetic complication [Unknown]
